FAERS Safety Report 14276112 (Version 3)
Quarter: 2021Q4

REPORT INFORMATION
  Report Type: Spontaneous
  Country: IT (occurrence: IT)
  Receive Date: 20171212
  Receipt Date: 20211027
  Transmission Date: 20220303
  Serious: Yes (Life-Threatening, Hospitalization, Congenital Anomaly, Other)
  Sender: FDA-Public Use
  Company Number: IT-MINISAL02-437114

PATIENT
  Age: 36 Year
  Sex: Female

DRUGS (8)
  1. NIMESULIDE [Suspect]
     Active Substance: NIMESULIDE
     Indication: Neuritis
     Route: 065
  2. NIMESULIDE [Suspect]
     Active Substance: NIMESULIDE
     Dosage: 100 MG, QD
     Route: 065
  3. NIMESULIDE [Suspect]
     Active Substance: NIMESULIDE
     Dosage: 200 MG, QD
     Route: 065
  4. DICLOFENAC [Suspect]
     Active Substance: DICLOFENAC
     Indication: Neuritis
     Route: 065
  5. DICLOFENAC [Suspect]
     Active Substance: DICLOFENAC
     Dosage: 75 MG, QD
     Route: 065
  6. ACETAMINOPHEN [Suspect]
     Active Substance: ACETAMINOPHEN
     Indication: Neuritis
     Route: 065
  7. ACETAMINOPHEN [Suspect]
     Active Substance: ACETAMINOPHEN
     Dosage: 2 G, QD, 1-2 G, QD
     Route: 065
  8. ACETAMINOPHEN [Suspect]
     Active Substance: ACETAMINOPHEN
     Dosage: 9 G, QD, 8-9 G, QD
     Route: 065

REACTIONS (10)
  - Maternal exposure during pregnancy [Unknown]
  - Contraindication to medical treatment [Unknown]
  - Overdose [Unknown]
  - Renal failure [Unknown]
  - Foetal exposure during pregnancy [Unknown]
  - Polyuria [Unknown]
  - Neonatal respiratory distress [Recovered/Resolved]
  - Ductus arteriosus stenosis foetal [Recovered/Resolved]
  - Low birth weight baby [Unknown]
  - Premature baby [Unknown]
